FAERS Safety Report 4371203-X (Version None)
Quarter: 2004Q2

REPORT INFORMATION
  Report Type: 
  Country: None (occurrence: None)
  Receive Date: 20040604
  Receipt Date: 20040526
  Transmission Date: 20050107
  Serious: Yes (Hospitalization)
  Sender: FDA-Public Use
  Company Number: GB-GLAXOSMITHKLINE-B0334008A

PATIENT
  Age: 90 Year
  Sex: Male

DRUGS (3)
  1. PAROXETINE HCL [Suspect]
     Indication: DEPRESSION
     Dosage: 20MG TWICE PER DAY
     Route: 048
     Dates: start: 20010101
  2. CO-CODAMOL [Concomitant]
     Route: 048
  3. DIAZEPAM [Concomitant]
     Dosage: 2MG PER DAY
     Route: 048

REACTIONS (4)
  - DUODENITIS [None]
  - GASTROINTESTINAL HAEMORRHAGE [None]
  - HELICOBACTER INFECTION [None]
  - MELAENA [None]
